FAERS Safety Report 4452628-0 (Version None)
Quarter: 2004Q3

REPORT INFORMATION
  Report Type: 
  Country: None (occurrence: None)
  Receive Date: 20040916
  Receipt Date: 20040902
  Transmission Date: 20050211
  Serious: Yes (Disabling)
  Sender: FDA-Public Use
  Company Number: 2004AC00275

PATIENT
  Age: 81 Year
  Sex: Male
  Weight: 75 kg

DRUGS (9)
  1. BUPIVACAINE [Suspect]
     Indication: POST PROCEDURAL PAIN
     Dosage: 8 ML ED
     Route: 008
  2. BUPIVACAINE [Suspect]
     Indication: POST PROCEDURAL PAIN
     Dosage: 4 ML /HR ED
     Route: 008
  3. LIDOCAINE [Suspect]
     Indication: POST PROCEDURAL PAIN
     Dosage: 2 ML ED
     Route: 008
  4. FENTANYL [Suspect]
     Indication: GENERAL ANAESTHESIA
     Dosage: 150 UG DAILY IV
     Route: 042
  5. THIAMYLAL SODIUM [Concomitant]
  6. ROCURONIUM [Concomitant]
  7. ISOFLURANE [Concomitant]
  8. EPHEDRINE SUL CAP [Concomitant]
  9. RINGER'S [Concomitant]

REACTIONS (10)
  - AIR EMBOLISM [None]
  - ANAESTHETIC COMPLICATION [None]
  - AREFLEXIA [None]
  - FAECAL INCONTINENCE [None]
  - HYPOTENSION [None]
  - PARALYSIS FLACCID [None]
  - POST PROCEDURAL COMPLICATION [None]
  - SENSORY LOSS [None]
  - SPINAL CORD INJURY [None]
  - URINARY INCONTINENCE [None]
